FAERS Safety Report 6295802-3 (Version None)
Quarter: 2009Q4

REPORT INFORMATION
  Report Type: 
  Country: None (occurrence: None)
  Receive Date: 20090803
  Receipt Date: 20090803
  Transmission Date: 20100525
  Serious: No
  Sender: FDA-Public Use
  Company Number: None

PATIENT
  Age: 45 Year
  Sex: Male

DRUGS (5)
  1. CLINDAMYCIN [Suspect]
     Dosage: 900 MG IV Q8HOURS
     Route: 042
     Dates: start: 20071001, end: 20071006
  2. ROCEPHIN [Suspect]
     Dosage: 1 GM IV Q12 HOURS
     Route: 042
     Dates: start: 20071001, end: 20071006
  3. AUGMENTIN [Concomitant]
  4. LIPITOR [Concomitant]
  5. METFORMIN HCL [Concomitant]

REACTIONS (4)
  - ALANINE AMINOTRANSFERASE INCREASED [None]
  - ASPARTATE AMINOTRANSFERASE INCREASED [None]
  - BLOOD ALKALINE PHOSPHATASE INCREASED [None]
  - LIVER INJURY [None]
